FAERS Safety Report 7110450-0 (Version None)
Quarter: 2010Q4

REPORT INFORMATION
  Report Type: 
  Country: None (occurrence: None)
  Receive Date: 20101118
  Receipt Date: 20101108
  Transmission Date: 20110411
  Serious: Yes (Other)
  Sender: FDA-Public Use
  Company Number: JP-SANOFI-AVENTIS-2010SA069040

PATIENT
  Sex: Male

DRUGS (2)
  1. MYSLEE [Suspect]
     Route: 048
  2. DOGMATYL [Suspect]
     Route: 048

REACTIONS (1)
  - INFERTILITY MALE [None]
